FAERS Safety Report 24874762 (Version 2)
Quarter: 2025Q1

REPORT INFORMATION
  Report Type: Spontaneous
  Country: US (occurrence: US)
  Receive Date: 20250122
  Receipt Date: 20250123
  Transmission Date: 20250409
  Serious: No
  Sender: BIOGEN
  Company Number: US-BIOGEN-2024BI01281305

PATIENT
  Sex: Male

DRUGS (3)
  1. VUMERITY [Suspect]
     Active Substance: DIROXIMEL FUMARATE
     Indication: Multiple sclerosis
     Dosage: X 7 DAYS?START DATE ALSO REPORTED AS 29-AUG-2024
     Route: 050
     Dates: start: 20240826
  2. VUMERITY [Suspect]
     Active Substance: DIROXIMEL FUMARATE
     Route: 050
     Dates: start: 2024
  3. VITAMIN D [Concomitant]
     Active Substance: VITAMIN D NOS
     Route: 050

REACTIONS (5)
  - Product dose omission issue [Unknown]
  - Fatigue [Unknown]
  - Sensory disturbance [Recovered/Resolved]
  - Skin burning sensation [Recovered/Resolved]
  - Burning sensation [Recovered/Resolved]

NARRATIVE: CASE EVENT DATE: 20240101
